FAERS Safety Report 17847509 (Version 1)
Quarter: 2020Q2

REPORT INFORMATION
  Report Type: Other
  Country: US (occurrence: US)
  Receive Date: 20200601
  Receipt Date: 20200601
  Transmission Date: 20200714
  Serious: Yes (Life-Threatening, Hospitalization, Other)
  Sender: FDA-Public Use
  Company Number: US-FDC LIMITED-2085324

PATIENT
  Age: 69 Year
  Sex: Male

DRUGS (2)
  1. CIPROFLOXACIN. [Suspect]
     Active Substance: CIPROFLOXACIN
     Indication: EMPHYSEMATOUS PYELONEPHRITIS
     Route: 065
  2. CEFTAZIDIME/AVIBACTAM [Suspect]
     Active Substance: AVIBACTAM SODIUM\CEFTAZIDIME
     Route: 065

REACTIONS (3)
  - Emphysematous pyelonephritis [Unknown]
  - Condition aggravated [Unknown]
  - Drug ineffective [Unknown]
